FAERS Safety Report 21798825 (Version 1)
Quarter: 2022Q4

REPORT INFORMATION
  Report Type: Spontaneous
  Country: PL (occurrence: PL)
  Receive Date: 20221230
  Receipt Date: 20221230
  Transmission Date: 20230113
  Serious: Yes (Other)
  Sender: FDA-Public Use
  Company Number: PL-Zentiva-2022-ZT-013031

PATIENT
  Age: 41 Year

DRUGS (5)
  1. ATORVASTATIN [Interacting]
     Active Substance: ATORVASTATIN
     Indication: Dyslipidaemia
     Dosage: UNK
     Route: 065
  2. TRAMADOL [Interacting]
     Active Substance: TRAMADOL
     Indication: Visceral pain
     Dosage: UNK
     Route: 065
  3. QUETIAPINE [Interacting]
     Active Substance: QUETIAPINE
     Indication: Anxiety
     Dosage: UNK
     Route: 065
  4. OMEPRAZOLE [Concomitant]
     Active Substance: OMEPRAZOLE
     Indication: Abdominal pain upper
     Dosage: UNK
     Route: 065
  5. IBUPROFEN [Concomitant]
     Active Substance: IBUPROFEN
     Indication: Visceral pain
     Dosage: UNK
     Route: 065

REACTIONS (2)
  - Seizure [Recovered/Resolved]
  - Drug interaction [Recovered/Resolved]
